FAERS Safety Report 9524317 (Version 1)
Quarter: 2013Q1

REPORT INFORMATION
  Report Type: Spontaneous
  Country: US (occurrence: None)
  Receive Date: 20130314
  Receipt Date: 20130314
  Transmission Date: 20140127
  Serious: No
  Sender: FDA-Public Use
  Company Number: 1301USA003440

PATIENT
  Age: 52 Year
  Sex: Male
  Weight: 72.6 kg

DRUGS (1)
  1. VICTRELIS (BOCEPREVIR) CAPSULE, 200MG [Suspect]
     Indication: HEPATITIS C
     Route: 048

REACTIONS (2)
  - Syncope [None]
  - Dizziness [None]
